FAERS Safety Report 18436884 (Version 1)
Quarter: 2020Q4

REPORT INFORMATION
  Report Type: Spontaneous
  Country: ES (occurrence: ES)
  Receive Date: 20201028
  Receipt Date: 20201028
  Transmission Date: 20210114
  Serious: Yes (Other)
  Sender: FDA-Public Use
  Company Number: ES-TEVA-2020-ES-1841572

PATIENT
  Age: 54 Year
  Sex: Male

DRUGS (3)
  1. ANAFRANIL [Interacting]
     Active Substance: CLOMIPRAMINE HYDROCHLORIDE
     Dosage: 75 MG
     Route: 048
     Dates: start: 20200925, end: 20200925
  2. ENALAPRIL (2142A) [Suspect]
     Active Substance: ENALAPRIL
     Dosage: 20 MG
     Route: 048
     Dates: start: 20200925, end: 20200925
  3. NALTREXONA (2458A) [Interacting]
     Active Substance: NALTREXONE HYDROCHLORIDE
     Dosage: 50 MG
     Route: 048
     Dates: start: 20200925, end: 20200925

REACTIONS (4)
  - Hypotension [Unknown]
  - Wrong patient received product [Recovered/Resolved]
  - Depressed level of consciousness [Unknown]
  - Drug interaction [Unknown]

NARRATIVE: CASE EVENT DATE: 20200925
